FAERS Safety Report 5237929-0 (Version None)
Quarter: 2007Q1

REPORT INFORMATION
  Report Type: 
  Country: None (occurrence: None)
  Receive Date: 20070209
  Receipt Date: 20070130
  Transmission Date: 20070707
  Serious: Yes (Hospitalization)
  Sender: FDA-Public Use
  Company Number: OMPQ-NO-0701S-0048

PATIENT
  Age: 60 Year
  Sex: Male
  Weight: 66.5 kg

DRUGS (3)
  1. OMNIPAQUE 140 [Suspect]
     Indication: INTRACRANIAL ANEURYSM
     Dosage: 100 ML, SINGLE DOSE, I.A.
     Route: 013
     Dates: start: 20070115, end: 20070115
  2. LIPITOR [Concomitant]
  3. WARFARIN SODIUM [Concomitant]

REACTIONS (2)
  - CHOLESTASIS [None]
  - HEPATOCELLULAR DAMAGE [None]
